FAERS Safety Report 18054453 (Version 2)
Quarter: 2020Q4

REPORT INFORMATION
  Report Type: Report from Study
  Country: US (occurrence: US)
  Receive Date: 20200722
  Receipt Date: 20201202
  Transmission Date: 20210113
  Serious: Yes (Other)
  Sender: FDA-Public Use
  Company Number: US-BIOGEN-2020BI00898685

PATIENT
  Age: 56 Year
  Sex: Male

DRUGS (2)
  1. TECFIDERA [Suspect]
     Active Substance: DIMETHYL FUMARATE
     Indication: MULTIPLE SCLEROSIS
     Route: 065
     Dates: start: 20140717
  2. TECFIDERA [Suspect]
     Active Substance: DIMETHYL FUMARATE
     Route: 048
     Dates: start: 2016

REACTIONS (5)
  - Tremor [Unknown]
  - Product dose omission in error [Unknown]
  - Gastric disorder [Unknown]
  - Confusional state [Unknown]
  - Crohn^s disease [Unknown]

NARRATIVE: CASE EVENT DATE: 202010
